FAERS Safety Report 10550002 (Version 1)
Quarter: 2014Q4

REPORT INFORMATION
  Report Type: Spontaneous
  Country: US (occurrence: None)
  Receive Date: 20141020
  Receipt Date: 20141020
  Transmission Date: 20150529
  Serious: No
  Sender: FDA-Public Use
  Company Number: AEGR000565

PATIENT
  Age: 20 Year
  Sex: Female
  Weight: 49.9 kg

DRUGS (6)
  1. VESTURA (DROSPIRENONE W/ETHINYLESTRADIOL) [Concomitant]
  2. VITAMIN E [Concomitant]
     Active Substance: .ALPHA.-TOCOPHEROL
  3. EZETIMIBE (EZETIMIBE) (TABLET) [Concomitant]
     Active Substance: EZETIMIBE
  4. JUXTAPID [Suspect]
     Active Substance: LOMITAPIDE MESYLATE
     Indication: TYPE IIA HYPERLIPIDAEMIA
     Route: 048
     Dates: start: 20130315, end: 20130413
  5. ROSUVASTATIN (ROSUVASTATIN) [Concomitant]
     Active Substance: ROSUVASTATIN
  6. ASPIRIN (ACETYLSALICYLIC ACID) [Concomitant]
     Active Substance: ASPIRIN

REACTIONS (1)
  - Flatulence [None]

NARRATIVE: CASE EVENT DATE: 20130618
